FAERS Safety Report 15708331 (Version 1)
Quarter: 2018Q4

REPORT INFORMATION
  Report Type: Spontaneous
  Country: US (occurrence: US)
  Receive Date: 20181211
  Receipt Date: 20181211
  Transmission Date: 20190205
  Serious: No
  Sender: FDA-Public Use
  Company Number: US-PFIZER INC-2018505958

PATIENT
  Age: 39 Year
  Sex: Male
  Weight: 90.72 kg

DRUGS (4)
  1. NICOTINE. [Suspect]
     Active Substance: NICOTINE
     Indication: SMOKING CESSATION THERAPY
     Dosage: 10 MG, UNK
     Route: 055
  2. NICOTINE. [Suspect]
     Active Substance: NICOTINE
     Indication: SMOKING CESSATION THERAPY
     Dosage: 14 MG, UNK (14 MG, 28 COUNT)
     Route: 062
     Dates: start: 201704
  3. NICOTINE. [Suspect]
     Active Substance: NICOTINE
     Indication: SMOKING CESSATION THERAPY
     Dosage: UNK
  4. NICOTINE. [Suspect]
     Active Substance: NICOTINE
     Dosage: 21 MG, UNK (21 MG, 28 COUNT)
     Route: 062
     Dates: start: 20180626

REACTIONS (1)
  - Drug ineffective [Unknown]
